FAERS Safety Report 6200308-3 (Version None)
Quarter: 2009Q2

REPORT INFORMATION
  Report Type: 
  Country: None (occurrence: None)
  Receive Date: 20090522
  Receipt Date: 20090518
  Transmission Date: 20091009
  Serious: Yes (Other)
  Sender: FDA-Public Use
  Company Number: US-ABBOTT-09P-163-0574384-00

PATIENT
  Sex: Male
  Weight: 83.99 kg

DRUGS (2)
  1. NIASPAN [Suspect]
     Indication: BLOOD CHOLESTEROL INCREASED
     Route: 048
  2. THYROID TAB [Concomitant]
     Indication: HYPOTHYROIDISM
     Route: 048

REACTIONS (14)
  - CONVULSION [None]
  - CRYING [None]
  - DELIRIUM [None]
  - ERUCTATION [None]
  - ERYTHEMA [None]
  - FALL [None]
  - GASTROINTESTINAL PAIN [None]
  - HEART RATE INCREASED [None]
  - LOSS OF CONSCIOUSNESS [None]
  - MUSCULAR WEAKNESS [None]
  - NAUSEA [None]
  - SKIN BURNING SENSATION [None]
  - SPEECH DISORDER [None]
  - SWELLING [None]
